FAERS Safety Report 6668234-3 (Version None)
Quarter: 2010Q2

REPORT INFORMATION
  Report Type: 
  Country: None (occurrence: None)
  Receive Date: 20100406
  Receipt Date: 20100325
  Transmission Date: 20101027
  Serious: Yes (Other)
  Sender: FDA-Public Use
  Company Number: US-JNJFOC-20100308092

PATIENT
  Age: 62 Year
  Sex: Male

DRUGS (2)
  1. LEVAQUIN [Suspect]
     Indication: UPPER RESPIRATORY TRACT INFECTION
     Route: 048
  2. LEVAQUIN [Suspect]
     Indication: COUGH
     Route: 048

REACTIONS (4)
  - CARTILAGE INJURY [None]
  - EPICONDYLITIS [None]
  - JOINT INJURY [None]
  - TENDON RUPTURE [None]
